FAERS Safety Report 16412120 (Version 10)
Quarter: 2019Q4

REPORT INFORMATION
  Report Type: Report from Study
  Country: US (occurrence: US)
  Receive Date: 20190610
  Receipt Date: 20191015
  Transmission Date: 20200122
  Serious: Yes (Hospitalization)
  Sender: FDA-Public Use
  Company Number: US-ACTELION-A-US2019-186360

PATIENT
  Age: 55 Year
  Sex: Female
  Weight: 77.1 kg

DRUGS (4)
  1. VELETRI [Suspect]
     Active Substance: EPOPROSTENOL
     Dosage: 9.25 NG/KG, PER MIN
     Route: 042
  2. VELETRI [Suspect]
     Active Substance: EPOPROSTENOL
     Dosage: 5 NG/KG, PER MIN
     Route: 042
  3. OMEPRAZOLE. [Concomitant]
     Active Substance: OMEPRAZOLE
  4. VELETRI [Suspect]
     Active Substance: EPOPROSTENOL
     Indication: PULMONARY HYPERTENSION
     Dosage: 9.25 NG/KG, PER MIN
     Route: 042

REACTIONS (26)
  - Flushing [Unknown]
  - Abdominal pain [Unknown]
  - Liver transplant [Unknown]
  - Eating disorder [Unknown]
  - Aspiration pleural cavity [Unknown]
  - Administration site pruritus [Unknown]
  - Pruritus [Unknown]
  - Malaise [Unknown]
  - Device related infection [Unknown]
  - Abdominal discomfort [Unknown]
  - Gastrooesophageal reflux disease [Unknown]
  - Catheter site infection [Unknown]
  - Dyspnoea [Unknown]
  - Nausea [Recovering/Resolving]
  - Headache [Recovering/Resolving]
  - Decreased appetite [Unknown]
  - Oesophageal food impaction [Unknown]
  - Chest discomfort [Unknown]
  - Diarrhoea [Unknown]
  - Hospitalisation [Unknown]
  - Pulmonary oedema [Unknown]
  - Pain in jaw [Unknown]
  - Abdominal distension [Unknown]
  - Weight decreased [Unknown]
  - Catheter management [Unknown]
  - Frequent bowel movements [Unknown]

NARRATIVE: CASE EVENT DATE: 20190604
